FAERS Safety Report 5205756-6 (Version None)
Quarter: 2007Q1

REPORT INFORMATION
  Report Type: 
  Country: None (occurrence: None)
  Receive Date: 20070111
  Receipt Date: 20070103
  Transmission Date: 20070707
  Serious: Yes (Hospitalization)
  Sender: FDA-Public Use
  Company Number: US-BRISTOL-MYERS SQUIBB COMPANY-13631486

PATIENT
  Age: 65 Year
  Sex: Female
  Weight: 61 kg

DRUGS (11)
  1. CETUXIMAB [Suspect]
     Indication: PANCREATIC CARCINOMA
     Route: 042
     Dates: start: 20061222, end: 20061222
  2. GEMCITABINE [Suspect]
     Indication: PANCREATIC CARCINOMA
     Route: 042
     Dates: start: 20061222, end: 20061222
  3. OXALIPLATIN [Suspect]
     Indication: PANCREATIC CARCINOMA
     Route: 042
     Dates: start: 20061222, end: 20061222
  4. TEMAZEPAM [Concomitant]
     Indication: INSOMNIA
     Route: 048
  5. ZETIA [Concomitant]
     Route: 048
  6. TOPROL-XL [Concomitant]
     Route: 048
  7. TEVETEN [Concomitant]
     Dosage: DOSAGE FORM = 600/25
     Route: 048
  8. EFUDEX [Concomitant]
     Route: 061
  9. LOMOTIL [Concomitant]
     Indication: DIARRHOEA
     Route: 048
  10. ULTRAM [Concomitant]
     Route: 048
  11. DOXAZOSIN MESYLATE [Concomitant]
     Route: 048

REACTIONS (6)
  - DIARRHOEA [None]
  - HYPONATRAEMIA [None]
  - NAUSEA [None]
  - NORMOCHROMIC NORMOCYTIC ANAEMIA [None]
  - URINARY TRACT INFECTION [None]
  - VOMITING [None]
